FAERS Safety Report 10697914 (Version 3)
Quarter: 2015Q1

REPORT INFORMATION
  Report Type: Spontaneous
  Country: IT (occurrence: None)
  Receive Date: 20150106
  Receipt Date: 20150331
  Transmission Date: 20150721
  Serious: Yes (Other)
  Sender: FDA-Public Use
  Company Number: 8003653

PATIENT
  Age: 71 Year
  Sex: Female

DRUGS (5)
  1. EUTIROX [Suspect]
     Active Substance: LEVOTHYROXINE SODIUM
     Indication: HYPOTHYROIDISM
     Route: 048
     Dates: start: 20140627, end: 20140629
  2. COLCHICINE. [Suspect]
     Active Substance: COLCHICINE
     Indication: PERICARDITIS
     Route: 048
     Dates: start: 20140629, end: 20140629
  3. NEXIUM [Concomitant]
     Active Substance: ESOMEPRAZOLE MAGNESIUM
  4. DELTACORTENE (PREDNISONE) [Concomitant]
     Active Substance: PREDNISONE
  5. ASCRIPTIN (ASCRIPTIN) (TABLET) (ACETYLSALICYLIC ACID, MAGNESIUM HYDROXIDE, ALUMINUM HYDROXIDE) [Concomitant]

REACTIONS (3)
  - Angioedema [None]
  - Urticaria [None]
  - Off label use [None]

NARRATIVE: CASE EVENT DATE: 20140629
